FAERS Safety Report 4641297-2 (Version None)
Quarter: 2005Q2

REPORT INFORMATION
  Report Type: 
  Country: None (occurrence: None)
  Receive Date: 20050420
  Receipt Date: 20050420
  Transmission Date: 20051028
  Serious: No
  Sender: FDA-Public Use
  Company Number: None

PATIENT
  Age: 25 Year
  Sex: Male
  Weight: 61 kg

DRUGS (7)
  1. AMPHOTERICIN B [Suspect]
     Indication: COCCIDIOIDOMYCOSIS
     Dosage: 30 MG - 60 MG IV Q DAY
     Route: 042
     Dates: start: 20040801, end: 20040804
  2. ABELCET [Suspect]
     Dosage: 180 MG X  1 IV
     Route: 042
     Dates: start: 20040805, end: 20040805
  3. TYLENOL [Concomitant]
  4. BENADRYL [Concomitant]
  5. DEMEROL [Concomitant]
  6. VANCOMYCIN [Concomitant]
  7. CLINDAMYCIN [Concomitant]

REACTIONS (2)
  - CHILLS [None]
  - INFUSION RELATED REACTION [None]
